FAERS Safety Report 9665338 (Version 1)
Quarter: 2013Q4

REPORT INFORMATION
  Report Type: Spontaneous
  Country: FR (occurrence: FR)
  Receive Date: 20131101
  Receipt Date: 20131101
  Transmission Date: 20140711
  Serious: Yes (Hospitalization)
  Sender: FDA-Public Use
  Company Number: FR-ROCHE-1294711

PATIENT
  Age: 65 Year
  Sex: Female

DRUGS (9)
  1. AVASTIN [Suspect]
     Indication: ADENOCARCINOMA OF COLON
     Route: 042
     Dates: start: 20130619, end: 20130619
  2. OXALIPLATIN [Suspect]
     Indication: ADENOCARCINOMA OF COLON
     Dosage: ACCORD, PP00466
     Route: 042
     Dates: start: 20130619, end: 20130619
  3. CALCIUM GLUCONATE [Suspect]
     Indication: ADJUVANT THERAPY
     Route: 042
     Dates: start: 20130619, end: 20130619
  4. MAGNESIUM PIDOLATE [Suspect]
     Indication: ADJUVANT THERAPY
     Route: 042
     Dates: start: 20130619, end: 20130619
  5. CALCIUM FOLINATE [Suspect]
     Indication: ADJUVANT THERAPY
     Route: 042
     Dates: start: 20130619, end: 20130619
  6. FLUOROURACIL [Suspect]
     Indication: ADENOCARCINOMA OF COLON
     Dosage: ACCORD, PP00649
     Route: 065
     Dates: start: 20130619, end: 20130619
  7. AMAREL [Concomitant]
     Route: 065
  8. ATENOLOL [Concomitant]
     Route: 065
  9. SIMVASTATIN [Concomitant]
     Route: 065

REACTIONS (3)
  - Back pain [Unknown]
  - Hypoaesthesia [Unknown]
  - Gait disturbance [Unknown]
